FAERS Safety Report 7274106-6 (Version None)
Quarter: 2011Q1

REPORT INFORMATION
  Report Type: 
  Country: None (occurrence: None)
  Receive Date: 20110204
  Receipt Date: 20110127
  Transmission Date: 20110831
  Serious: Yes (Other)
  Sender: FDA-Public Use
  Company Number: US-BIOGENIDEC-2010BI032150

PATIENT
  Age: 64 Year
  Sex: Female

DRUGS (11)
  1. AVONEX [Suspect]
     Route: 030
     Dates: start: 20110101
  2. AVONEX [Suspect]
     Indication: MULTIPLE SCLEROSIS
     Route: 030
     Dates: start: 20000411, end: 20041123
  3. TAMOXIFEN CITRATE [Concomitant]
  4. TYLENOL-500 [Concomitant]
  5. CALCIUM [Concomitant]
  6. AVONEX [Suspect]
     Route: 030
     Dates: start: 20100901, end: 20101020
  7. MULTI-VITAMIN [Concomitant]
  8. MOTRIN [Concomitant]
  9. VITAMIN D [Concomitant]
  10. SIMVASTATIN [Concomitant]
  11. EFFEXOR [Concomitant]

REACTIONS (3)
  - BREAST CANCER STAGE I [None]
  - MULTIPLE SCLEROSIS RELAPSE [None]
  - DEPRESSION [None]
